FAERS Safety Report 18940116 (Version 1)
Quarter: 2021Q1

REPORT INFORMATION
  Report Type: Spontaneous
  Country: US (occurrence: US)
  Receive Date: 20210225
  Receipt Date: 20210225
  Transmission Date: 20210420
  Serious: No
  Sender: FDA-Public Use
  Company Number: US-UNITED THERAPEUTICS-UNT-2021-003290

PATIENT
  Age: 40 Year
  Sex: Female

DRUGS (2)
  1. REMODULIN [Suspect]
     Active Substance: TREPROSTINIL
     Indication: PULMONARY ARTERIAL HYPERTENSION
     Dosage: UNK, CONTINUING
     Route: 058
     Dates: start: 20201202
  2. REMODULIN [Suspect]
     Active Substance: TREPROSTINIL
     Dosage: 0.0592 ?G/KG, CONTINUING
     Route: 058

REACTIONS (2)
  - Infusion site haemorrhage [Unknown]
  - Device infusion issue [Unknown]

NARRATIVE: CASE EVENT DATE: 20210219
